FAERS Safety Report 8957793 (Version 2)
Quarter: 2012Q4

REPORT INFORMATION
  Report Type: 
  Country: US (occurrence: US)
  Receive Date: 20121211
  Receipt Date: 20121213
  Transmission Date: 20130627
  Serious: Yes (Hospitalization, Other)
  Sender: FDA-Public Use
  Company Number: US-TEVA-375021USA

PATIENT
  Age: 71 Year
  Sex: Male
  Weight: 145.13 kg

DRUGS (1)
  1. CETIRIZINE W/PSEUDOEPHEDRINE [Suspect]
     Indication: NASAL CONGESTION
     Dosage: 120 mg/5 mg; One tablet, single at 2100
     Route: 048
     Dates: start: 20121203, end: 20121203

REACTIONS (8)
  - Angioedema [Unknown]
  - Disorientation [Recovering/Resolving]
  - Gait disturbance [Recovering/Resolving]
  - Coordination abnormal [Recovering/Resolving]
  - Dyspnoea [Not Recovered/Not Resolved]
  - Panic reaction [Not Recovered/Not Resolved]
  - Anxiety [Not Recovered/Not Resolved]
  - Drug administered to patient of inappropriate age [Unknown]
